FAERS Safety Report 10077934 (Version 1)
Quarter: 2014Q2

REPORT INFORMATION
  Report Type: Report from Study
  Country: US (occurrence: US)
  Receive Date: 20140415
  Receipt Date: 20140415
  Transmission Date: 20141212
  Serious: Yes (Other)
  Sender: FDA-Public Use
  Company Number: US-ROCHE-1380253

PATIENT
  Sex: Male
  Weight: 102.6 kg

DRUGS (17)
  1. NUTROPIN AQ [Suspect]
     Indication: HYPOPITUITARISM
     Route: 058
  2. AMLODIPINE [Concomitant]
     Route: 048
  3. ANDROGEL [Concomitant]
     Dosage: IN THE MORNING TO UPPER ARM AND SHOULDER FOR 90DAYS
     Route: 061
     Dates: start: 20140116
  4. ASPIRIN [Concomitant]
     Dosage: FOR 30 DAYS
     Route: 048
     Dates: start: 20130822
  5. ATENOLOL [Concomitant]
     Dosage: FOR 30DAYS
     Route: 048
     Dates: start: 20131204
  6. FERROUS SULPHATE [Concomitant]
     Dosage: 1 TABLET
     Route: 048
     Dates: start: 20140105
  7. HYDROCORTISONE [Concomitant]
     Dosage: WITH FOOD FOR 30 DAYS
     Route: 048
     Dates: start: 20131204
  8. ISOSORBIDE MONONITRAT [Concomitant]
     Dosage: FOR 30DAYS
     Route: 048
  9. LORCET (UNITED STATES) [Concomitant]
     Dosage: FOR 30DAYS
     Route: 048
     Dates: start: 20131204
  10. NITROGLYCERIN [Concomitant]
     Route: 060
  11. PANTOPRAZOLE [Concomitant]
     Route: 048
     Dates: start: 20131204
  12. RESTORIL (UNITED STATES) [Concomitant]
     Dosage: AT BEDTIME FOR 30DAYS
     Route: 048
     Dates: start: 20131204
  13. SIMVASTATIN [Concomitant]
     Dosage: EVENING FOR 30DAYS
     Route: 048
     Dates: start: 20131204
  14. SUCRALFATE [Concomitant]
     Dosage: AN AN EMPTY STOMACH 1 HOUR BEFORE MEALS AND AT BEDTIME FOR 30DAYS
     Route: 048
     Dates: start: 20131204
  15. SYNTHROID [Concomitant]
     Route: 048
     Dates: start: 20130822
  16. VITAMIN B12 [Concomitant]
     Route: 065
     Dates: start: 20130822
  17. XANAX [Concomitant]
     Route: 048
     Dates: start: 20131204

REACTIONS (4)
  - Pneumonia [Unknown]
  - Dyspnoea [Unknown]
  - Asthenia [Unknown]
  - Cough [Unknown]
